FAERS Safety Report 5683128-8 (Version None)
Quarter: 2008Q1

REPORT INFORMATION
  Report Type: 
  Country: None (occurrence: None)
  Receive Date: 20080327
  Receipt Date: 20080321
  Transmission Date: 20080703
  Serious: Yes (Other)
  Sender: FDA-Public Use
  Company Number: US-ELI_LILLY_AND_COMPANY-US200803005103

PATIENT
  Sex: Male

DRUGS (3)
  1. HUMALOG [Suspect]
     Indication: DIABETES MELLITUS
     Dosage: UNK, UNK
     Dates: start: 19940101
  2. KEPPRA [Concomitant]
     Indication: EPILEPSY
  3. LAMICTAL [Concomitant]
     Indication: EPILEPSY

REACTIONS (1)
  - EPILEPSY [None]
